FAERS Safety Report 16734880 (Version 1)
Quarter: 2019Q3

REPORT INFORMATION
  Report Type: Spontaneous
  Country: US (occurrence: US)
  Receive Date: 20190823
  Receipt Date: 20190823
  Transmission Date: 20191005
  Serious: Yes (Other)
  Sender: FDA-Public Use
  Company Number: US-AKORN PHARMACEUTICALS-2019AKN01764

PATIENT
  Age: 13 Year
  Sex: Female
  Weight: 55.78 kg

DRUGS (6)
  1. MYORISAN [Suspect]
     Active Substance: ISOTRETINOIN
     Indication: FOLLICULITIS
  2. MYORISAN [Suspect]
     Active Substance: ISOTRETINOIN
     Indication: ACNE
     Dosage: 40 MG, 1X/DAY IN THE MORNING
     Route: 048
     Dates: start: 20190226, end: 20190719
  3. MYORISAN [Suspect]
     Active Substance: ISOTRETINOIN
     Indication: FOLLICULITIS
  4. AMNESTEEM [Suspect]
     Active Substance: ISOTRETINOIN
     Indication: ACNE
     Dosage: 10 MG, 1X/DAY IN THE MORNING
     Route: 048
     Dates: start: 20190708, end: 20190719
  5. AMNESTEEM [Suspect]
     Active Substance: ISOTRETINOIN
     Indication: FOLLICULITIS
  6. MYORISAN [Suspect]
     Active Substance: ISOTRETINOIN
     Indication: ACNE
     Dosage: 10 MG, 1X/DAY IN THE MORNING
     Route: 048
     Dates: start: 20190226, end: 20190719

REACTIONS (3)
  - Off label use [Recovered/Resolved]
  - Mood altered [Recovering/Resolving]
  - Anxiety [Recovering/Resolving]

NARRATIVE: CASE EVENT DATE: 2019
